FAERS Safety Report 7243902-3 (Version None)
Quarter: 2011Q1

REPORT INFORMATION
  Report Type: 
  Country: None (occurrence: None)
  Receive Date: 20110125
  Receipt Date: 20110118
  Transmission Date: 20110831
  Serious: Yes (Other)
  Sender: FDA-Public Use
  Company Number: A0908398A

PATIENT

DRUGS (1)
  1. AVANDIA [Suspect]
     Route: 065

REACTIONS (6)
  - SKIN ATROPHY [None]
  - BRAIN HYPOXIA [None]
  - SENSATION OF PRESSURE [None]
  - WEIGHT INCREASED [None]
  - INJURY [None]
  - LIMB DISCOMFORT [None]
